FAERS Safety Report 13291876 (Version 3)
Quarter: 2017Q2

REPORT INFORMATION
  Report Type: Spontaneous
  Country: JP (occurrence: JP)
  Receive Date: 20170303
  Receipt Date: 20170404
  Transmission Date: 20170830
  Serious: Yes (Hospitalization, Other)
  Sender: FDA-Public Use
  Company Number: JP-GLAXOSMITHKLINE-JP2017JPN028683

PATIENT
  Sex: Male

DRUGS (7)
  1. MAINTATE [Concomitant]
     Active Substance: BISOPROLOL FUMARATE
     Dosage: UNK
  2. FLIVAS [Concomitant]
     Active Substance: NAFTOPIDIL
     Dosage: UNK
  3. SERETIDE [Suspect]
     Active Substance: FLUTICASONE PROPIONATE\SALMETEROL XINAFOATE
     Indication: ASTHMA
     Dosage: UNK
     Route: 055
  4. HOKUNALIN [Concomitant]
     Active Substance: TULOBUTEROL
     Dosage: UNK
  5. DEPAS [Concomitant]
     Active Substance: ETIZOLAM
     Indication: AGITATION
     Dosage: UNK
  6. FUROSEMIDE. [Concomitant]
     Active Substance: FUROSEMIDE
     Dosage: UNK
  7. ASTOMIN [Concomitant]
     Active Substance: DIMEMORFAN
     Dosage: UNK

REACTIONS (3)
  - Cardiac asthma [Recovered/Resolved]
  - Cardiac failure acute [Recovered/Resolved]
  - Viral upper respiratory tract infection [Unknown]
